FAERS Safety Report 11672283 (Version 1)
Quarter: 2015Q4

REPORT INFORMATION
  Report Type: Spontaneous
  Country: US (occurrence: US)
  Receive Date: 20151027
  Receipt Date: 20151027
  Transmission Date: 20160304
  Serious: No
  Sender: FDA-Public Use
  Company Number: US-ELI_LILLY_AND_COMPANY-US201006006026

PATIENT
  Age: 47 Year
  Sex: Female

DRUGS (1)
  1. FORTEO [Suspect]
     Active Substance: TERIPARATIDE
     Indication: OSTEOPOROSIS
     Dosage: 20 UG, DAILY (1/D)
     Route: 065
     Dates: start: 2009

REACTIONS (4)
  - Urinary tract infection [Recovering/Resolving]
  - Stent placement [Unknown]
  - Renal stone removal [Unknown]
  - Dysuria [Unknown]

NARRATIVE: CASE EVENT DATE: 20100603
